FAERS Safety Report 7573396-X (Version None)
Quarter: 2011Q2

REPORT INFORMATION
  Report Type: 
  Country: None (occurrence: None)
  Receive Date: 20110627
  Receipt Date: 20110302
  Transmission Date: 20111010
  Serious: No
  Sender: FDA-Public Use
  Company Number: A0916365A

PATIENT
  Sex: Male

DRUGS (2)
  1. KEPPRA XR [Concomitant]
  2. LAMICTAL [Suspect]
     Indication: EPILEPSY
     Dosage: 25MG PER DAY
     Route: 048

REACTIONS (1)
  - RASH [None]
